FAERS Safety Report 8582999-5 (Version None)
Quarter: 2012Q3

REPORT INFORMATION
  Report Type: 
  Country: None (occurrence: None)
  Receive Date: 20120809
  Receipt Date: 20120725
  Transmission Date: 20120928
  Serious: Yes (Other)
  Sender: FDA-Public Use
  Company Number: US-ASTELLAS-2012US006810

PATIENT

DRUGS (2)
  1. ERLOTINIB HYDROCHLORIDE [Suspect]
     Indication: NON-SMALL CELL LUNG CANCER
     Dosage: 150 MG, UID/QD
     Route: 048
  2. ENTINOSTAT [Suspect]
     Indication: NON-SMALL CELL LUNG CANCER
     Dosage: 10 MG, DAY 1 AND 15 OF A 28-DAY CYCLE
     Route: 048

REACTIONS (1)
  - HYPOXIA [None]
